FAERS Safety Report 8186789-7 (Version None)
Quarter: 2012Q1

REPORT INFORMATION
  Report Type: 
  Country: None (occurrence: None)
  Receive Date: 20120306
  Receipt Date: 20120306
  Transmission Date: 20120608
  Serious: No
  Sender: FDA-Public Use
  Company Number: None

PATIENT
  Age: 24 Year
  Sex: Male
  Weight: 124.73 kg

DRUGS (1)
  1. SEROQUEL [Suspect]
     Indication: BIPOLAR DISORDER
     Dosage: 1 PILL
     Route: 048
     Dates: start: 20111101, end: 20120205

REACTIONS (7)
  - AMNESIA [None]
  - AGITATION [None]
  - HOMICIDAL IDEATION [None]
  - WEIGHT INCREASED [None]
  - MIDDLE INSOMNIA [None]
  - DEPRESSION [None]
  - SUICIDAL IDEATION [None]
